FAERS Safety Report 9001298 (Version 2)
Quarter: 2013Q1

REPORT INFORMATION
  Report Type: Report from Study
  Country: US (occurrence: US)
  Receive Date: 20130107
  Receipt Date: 20130131
  Transmission Date: 20140127
  Serious: Yes (Other)
  Sender: FDA-Public Use
  Company Number: US-PURDUE-USA-2012-0097284

PATIENT
  Sex: Female

DRUGS (3)
  1. OXYCONTIN (NDA 22-272) [Suspect]
     Indication: PAIN
     Dosage: 60 MG, BID
     Route: 048
  2. GABAPENTINE [Concomitant]
     Indication: PRODUCT USED FOR UNKNOWN INDICATION
     Dosage: 800 MG, QID
     Route: 048
  3. VICODIN [Concomitant]
     Indication: BREAKTHROUGH PAIN

REACTIONS (6)
  - Surgery [Unknown]
  - Nerve injury [Unknown]
  - Spinal column stenosis [Unknown]
  - Inadequate analgesia [Unknown]
  - Musculoskeletal disorder [Unknown]
  - Nerve compression [Unknown]
